FAERS Safety Report 17865340 (Version 1)
Quarter: 2020Q2

REPORT INFORMATION
  Report Type: Spontaneous
  Country: US (occurrence: US)
  Receive Date: 20200605
  Receipt Date: 20200605
  Transmission Date: 20200714
  Serious: Yes (Hospitalization)
  Sender: FDA-Public Use
  Company Number: US-DENDREON PHARMACEUTICAL LLC-2020DEN000099

PATIENT

DRUGS (4)
  1. XTANDI [Concomitant]
     Active Substance: ENZALUTAMIDE
     Indication: PROSTATE CANCER
  2. TYLENOL [Concomitant]
     Active Substance: ACETAMINOPHEN
  3. OXYBUTYNIN. [Concomitant]
     Active Substance: OXYBUTYNIN CHLORIDE
     Indication: HYPERTONIC BLADDER
  4. PROVENGE [Suspect]
     Active Substance: SIPULEUCEL-T
     Indication: PROSTATE CANCER METASTATIC
     Dosage: DOSE # 1
     Route: 042
     Dates: start: 20200305, end: 20200305

REACTIONS (1)
  - Pulmonary embolism [Recovering/Resolving]

NARRATIVE: CASE EVENT DATE: 20200309
